FAERS Safety Report 7034311-0 (Version None)
Quarter: 2010Q4

REPORT INFORMATION
  Report Type: 
  Country: None (occurrence: None)
  Receive Date: 20101008
  Receipt Date: 20100927
  Transmission Date: 20110411
  Serious: Yes (Hospitalization)
  Sender: FDA-Public Use
  Company Number: FR-ELI_LILLY_AND_COMPANY-FR201009006919

PATIENT
  Sex: Female

DRUGS (8)
  1. ZYPREXA [Suspect]
     Indication: BIPOLAR DISORDER
     Dosage: UNK, UNKNOWN
     Route: 048
     Dates: start: 20100407, end: 20100419
  2. NOZINAN [Concomitant]
     Dosage: UNK, UNKNOWN
     Route: 048
     Dates: start: 20100330, end: 20100418
  3. SOLUPRED [Concomitant]
     Dosage: 20 MG, UNKNOWN
     Route: 065
  4. LASIX [Concomitant]
     Dosage: UNK, UNKNOWN
     Route: 065
  5. BRICANYL [Concomitant]
     Dosage: 5 MG, UNKNOWN
     Route: 065
  6. FURADANTINE [Concomitant]
     Dosage: UNK, UNKNOWN
     Route: 065
  7. XANAX [Concomitant]
     Dosage: UNK, UNKNOWN
     Route: 065
  8. DOLIPRANE [Concomitant]
     Dosage: UNK, UNKNOWN
     Route: 065

REACTIONS (2)
  - INFLAMMATION [None]
  - RHABDOMYOLYSIS [None]
